FAERS Safety Report 7544317-0 (Version None)
Quarter: 2011Q2

REPORT INFORMATION
  Report Type: 
  Country: None (occurrence: None)
  Receive Date: 20110613
  Receipt Date: 20071128
  Transmission Date: 20111010
  Serious: Yes (Hospitalization, Disabling, Other)
  Sender: FDA-Public Use
  Company Number: PHHO2007VE04925

PATIENT
  Sex: Female

DRUGS (1)
  1. DIOVAN HCT [Suspect]
     Indication: HYPERTENSION
     Dosage: 92.5 MG, QD
     Route: 048

REACTIONS (6)
  - VOMITING [None]
  - OESOPHAGEAL OBSTRUCTION [None]
  - ABDOMINAL PAIN [None]
  - EATING DISORDER [None]
  - GASTRIC NEOPLASM [None]
  - ASTHENIA [None]
